FAERS Safety Report 5316640-1 (Version None)
Quarter: 2007Q2

REPORT INFORMATION
  Report Type: 
  Country: None (occurrence: None)
  Receive Date: 20070504
  Receipt Date: 20070501
  Transmission Date: 20071010
  Serious: Yes (Hospitalization)
  Sender: FDA-Public Use
  Company Number: US-BAYER-200710766BWH

PATIENT
  Age: 64 Year
  Sex: Male
  Weight: 111 kg

DRUGS (17)
  1. NEXAVAR [Suspect]
     Indication: RENAL CELL CARCINOMA STAGE UNSPECIFIED
     Dosage: TOTAL DAILY DOSE: 800 MG  UNIT DOSE: 200 MG
     Route: 048
     Dates: start: 20070111, end: 20070124
  2. NEXAVAR [Suspect]
     Dosage: TOTAL DAILY DOSE: 400 MG  UNIT DOSE: 200 MG
     Route: 048
     Dates: start: 20070125, end: 20070221
  3. NEXAVAR [Suspect]
     Dosage: TOTAL DAILY DOSE: 200 MG  UNIT DOSE: 200 MG
     Route: 048
     Dates: start: 20070414
  4. NOVOLOG [Concomitant]
  5. PLAVIX [Concomitant]
  6. LEXAPRO [Concomitant]
  7. ALLEGRA [Concomitant]
  8. VYTORIN [Concomitant]
  9. NTG SR [Concomitant]
  10. ASPIRIN [Concomitant]
  11. CENTRUM SILVER [Concomitant]
  12. METANX [Concomitant]
  13. FISH OIL [Concomitant]
  14. CRANBERRY [Concomitant]
  15. ACEON [Concomitant]
  16. COREG [Concomitant]
  17. MICARDIS [Concomitant]

REACTIONS (9)
  - BLOOD PRESSURE INCREASED [None]
  - CEREBROVASCULAR ACCIDENT [None]
  - DYSARTHRIA [None]
  - FACIAL PALSY [None]
  - FATIGUE [None]
  - HYPERTENSION [None]
  - HYPOAESTHESIA [None]
  - HYPOAESTHESIA ORAL [None]
  - TRANSIENT ISCHAEMIC ATTACK [None]
